FAERS Safety Report 10010952 (Version 1)
Quarter: 2014Q1

REPORT INFORMATION
  Report Type: Spontaneous
  Country: GB (occurrence: None)
  Receive Date: 20140311
  Receipt Date: 20140311
  Transmission Date: 20141002
  Serious: Yes (Other)
  Sender: FDA-Public Use
  Company Number: SYM-2014-18082

PATIENT
  Age: 57 Year
  Sex: Female

DRUGS (4)
  1. TILDIEM [Suspect]
     Indication: PRODUCT USED FOR UNKNOWN INDICATION
     Dates: start: 20131031
  2. CANDESARTAN (CANDESARTAN) (CANDESARTAN) [Concomitant]
  3. LORATADINE (LORATADINE) (LORATADINE) [Concomitant]
  4. RAMIPRIL (RAMIPRIL) (RAMIPRIL) [Concomitant]

REACTIONS (2)
  - Rash maculo-papular [None]
  - Food interaction [None]
